FAERS Safety Report 6239224-X (Version None)
Quarter: 2009Q2

REPORT INFORMATION
  Report Type: 
  Country: None (occurrence: None)
  Receive Date: 20090622
  Receipt Date: 20090618
  Transmission Date: 20091009
  Serious: Yes (Hospitalization)
  Sender: FDA-Public Use
  Company Number: KR-BRISTOL-MYERS SQUIBB COMPANY-14670509

PATIENT
  Age: 65 Year
  Sex: Female
  Weight: 62 kg

DRUGS (5)
  1. CISPLATIN [Suspect]
     Indication: METASTATIC GASTRIC CANCER
     Dosage: INITIATED ON 19-NOV-2008
     Route: 042
     Dates: start: 20090506, end: 20090506
  2. FERROUS SULFATE TAB [Suspect]
     Indication: ANAEMIA
     Route: 048
     Dates: start: 20090304
  3. SUNITINIB MALATE [Suspect]
     Indication: METASTATIC GASTRIC CANCER
     Dosage: 25MG ONCE DAILY 2 WKS FOLLOWED BY 1 WK OFF TREATMENT(SCHEDULE 2/1)FROM 19NOV08,INTERRUPT ON 19MAY09
     Route: 048
     Dates: start: 20090519, end: 20090519
  4. CAPECITABINE [Suspect]
     Indication: METASTATIC GASTRIC CANCER
     Dosage: 1500MG TWICE DAILY FROM DAY 1 TO DAY 14 OF CYCLE FROM 19NOV08 TO 20MAY09 INTERRUPTED ON 20MAY09
     Route: 048
     Dates: start: 20081119
  5. SYNTHROID [Suspect]
     Indication: HYPOTHYROIDISM
     Route: 048
     Dates: start: 20090107

REACTIONS (3)
  - DEEP VEIN THROMBOSIS [None]
  - FEBRILE NEUTROPENIA [None]
  - PULMONARY EMBOLISM [None]
